FAERS Safety Report 6134148-0 (Version None)
Quarter: 2009Q1

REPORT INFORMATION
  Report Type: 
  Country: None (occurrence: None)
  Receive Date: 20090326
  Receipt Date: 20090317
  Transmission Date: 20090719
  Serious: Yes (Disabling)
  Sender: FDA-Public Use
  Company Number: TR-SANOFI-SYNTHELABO-A01200902986

PATIENT
  Sex: Male
  Weight: 65 kg

DRUGS (3)
  1. FLUOROURACIL [Concomitant]
     Indication: COLON CANCER
     Dosage: UNK
     Route: 042
     Dates: start: 20090102, end: 20090303
  2. ELOXATIN [Suspect]
     Indication: COLON CANCER
     Route: 042
  3. LEUCOVORIN CALCIUM [Concomitant]
     Indication: COLON CANCER
     Dosage: UNK
     Route: 042
     Dates: start: 20090102, end: 20090303

REACTIONS (1)
  - HEPATITIS ACUTE [None]
